FAERS Safety Report 5760850-6 (Version None)
Quarter: 2008Q2

REPORT INFORMATION
  Report Type: 
  Country: None (occurrence: None)
  Receive Date: 20080606
  Receipt Date: 20080529
  Transmission Date: 20081010
  Serious: Yes (Life-Threatening)
  Sender: FDA-Public Use
  Company Number: US-KINGPHARMUSA00001-K200800605

PATIENT

DRUGS (2)
  1. ALTACE [Suspect]
     Dosage: ONE OR TWO TABLETS, UNK
     Route: 064
  2. HYDROCHLOROTHIAZIDE [Suspect]
     Dosage: ONE OR TWO TABLETS, UNK
     Route: 064

REACTIONS (3)
  - CEREBRAL HAEMORRHAGE [None]
  - PREMATURE BABY [None]
  - SMALL FOR DATES BABY [None]
